FAERS Safety Report 10055530 (Version 1)
Quarter: 2014Q2

REPORT INFORMATION
  Report Type: Spontaneous
  Country: US (occurrence: US)
  Receive Date: 20140403
  Receipt Date: 20140403
  Transmission Date: 20141212
  Serious: Yes (Other)
  Sender: FDA-Public Use
  Company Number: US-RB-064346-14

PATIENT
  Age: 75 Year
  Sex: Female

DRUGS (1)
  1. MUCINEX FAST MAX CAPLET COUGH [Suspect]
     Indication: PRODUCT USED FOR UNKNOWN INDICATION
     Dosage: 2 CAPLETS 3 TIMES A DAY AT NO SPECIFIC TIME INTERVALS. PATIENT TOOK LAST DOSE ON 24-MAR-2014 AT 10AM
     Route: 048
     Dates: start: 20140323

REACTIONS (2)
  - Epistaxis [Recovered/Resolved]
  - Diarrhoea [Recovered/Resolved]
